FAERS Safety Report 25147322 (Version 1)
Quarter: 2025Q2

REPORT INFORMATION
  Report Type: Spontaneous
  Country: JP (occurrence: JP)
  Receive Date: 20250401
  Receipt Date: 20250401
  Transmission Date: 20250717
  Serious: Yes (Hospitalization, Other)
  Sender: PFIZER
  Company Number: JP-ONO-2024JP023264AA

PATIENT
  Age: 65 Year
  Sex: Female

DRUGS (8)
  1. BRAFTOVI [Suspect]
     Active Substance: ENCORAFENIB
     Indication: Malignant melanoma
     Route: 048
     Dates: start: 20250307, end: 202503
  2. MEKTOVI [Suspect]
     Active Substance: BINIMETINIB
     Indication: Malignant melanoma
     Route: 048
     Dates: start: 20250307, end: 202503
  3. OPDIVO [Suspect]
     Active Substance: NIVOLUMAB
     Indication: Malignant melanoma
     Route: 041
  4. OPDIVO [Suspect]
     Active Substance: NIVOLUMAB
     Route: 041
  5. OPDIVO [Suspect]
     Active Substance: NIVOLUMAB
     Route: 041
  6. YERVOY [Suspect]
     Active Substance: IPILIMUMAB
     Indication: Malignant melanoma
     Route: 041
  7. YERVOY [Suspect]
     Active Substance: IPILIMUMAB
     Route: 041
  8. YERVOY [Suspect]
     Active Substance: IPILIMUMAB
     Route: 041

REACTIONS (4)
  - Renal impairment [Not Recovered/Not Resolved]
  - Pyrexia [Unknown]
  - Diarrhoea [Recovering/Resolving]
  - Blood creatine phosphokinase increased [Unknown]

NARRATIVE: CASE EVENT DATE: 20250301
